FAERS Safety Report 5718549-8 (Version None)
Quarter: 2008Q2

REPORT INFORMATION
  Report Type: 
  Country: None (occurrence: None)
  Receive Date: 20080425
  Receipt Date: 20080418
  Transmission Date: 20081010
  Serious: Yes (Other)
  Sender: FDA-Public Use
  Company Number: PHBS2008IR04149

PATIENT
  Age: 22 Year
  Sex: Female

DRUGS (6)
  1. IMIPRAMINE [Suspect]
     Indication: PANIC DISORDER
     Dosage: 30 MG DAILY
     Route: 065
  2. IMIPRAMINE [Suspect]
     Dosage: 50 MG DAILY
     Route: 065
  3. CLONAZEPAM [Concomitant]
     Indication: PANIC DISORDER
     Dosage: 0.5 MG DAILY
     Route: 065
  4. VALPROATE SODIUM [Concomitant]
     Indication: ELECTROENCEPHALOGRAM ABNORMAL
     Dosage: 600 MG DAILY
     Route: 065
  5. VALPROATE SODIUM [Concomitant]
     Route: 065
  6. CARBAMAZEPINE [Suspect]
     Indication: EPILEPSY
     Dosage: 1600 MG DAILY
     Route: 065

REACTIONS (6)
  - CONDITION AGGRAVATED [None]
  - CONSCIOUSNESS FLUCTUATING [None]
  - DEREALISATION [None]
  - ELECTROENCEPHALOGRAM ABNORMAL [None]
  - HALLUCINATION, AUDITORY [None]
  - PANIC ATTACK [None]
